FAERS Safety Report 4650528-4 (Version None)
Quarter: 2005Q2

REPORT INFORMATION
  Report Type: 
  Country: None (occurrence: None)
  Receive Date: 20050429
  Receipt Date: 20050419
  Transmission Date: 20051028
  Serious: Yes (Disabling)
  Sender: FDA-Public Use
  Company Number: 2005062767

PATIENT
  Sex: Female
  Weight: 85 kg

DRUGS (4)
  1. CARDURA XL [Suspect]
     Indication: BLOOD PRESSURE INCREASED
     Dosage: (8 MG), ORAL
     Route: 048
     Dates: start: 20020215, end: 20050225
  2. APOREX            (DEXTROPROXYPHENE HYDROCHLORIDE, PARACETAMOL) [Concomitant]
  3. IRBESARTAN [Concomitant]
  4. BENDROFLUMETHIAZIDE        (BENDROFLUMETHIAZIDE) [Concomitant]

REACTIONS (2)
  - DRY MOUTH [None]
  - MYOPATHY [None]
